FAERS Safety Report 4941165-2 (Version None)
Quarter: 2006Q1

REPORT INFORMATION
  Report Type: 
  Country: None (occurrence: None)
  Receive Date: 20060308
  Receipt Date: 20060227
  Transmission Date: 20060701
  Serious: Yes (Other)
  Sender: FDA-Public Use
  Company Number: HQWYE043828FEB06

PATIENT
  Age: 70 Year
  Sex: Female

DRUGS (2)
  1. PANTOPRAZOLE SODIUM [Suspect]
     Indication: OESOPHAGITIS
     Dosage: 40 MG 1X PER 1 DAY ORAL; 20 MG 1X PER 1 DAY ORAL
     Route: 048
     Dates: start: 20050213, end: 20060201
  2. PANTOPRAZOLE SODIUM [Suspect]
     Indication: OESOPHAGITIS
     Dosage: 40 MG 1X PER 1 DAY ORAL; 20 MG 1X PER 1 DAY ORAL
     Route: 048
     Dates: start: 20060215

REACTIONS (1)
  - GASTRIC POLYPS [None]
